FAERS Safety Report 5010047-2 (Version None)
Quarter: 2006Q2

REPORT INFORMATION
  Report Type: 
  Country: None (occurrence: None)
  Receive Date: 20060404
  Receipt Date: 20051115
  Transmission Date: 20061013
  Serious: No
  Sender: FDA-Public Use
  Company Number: US200511000992

PATIENT
  Age: 42 Year
  Sex: Female
  Weight: 74.8 kg

DRUGS (3)
  1. CYMBALTA [Suspect]
     Indication: FIBROMYALGIA
     Dosage: 30 MG, DAILY (1/D)
     Dates: start: 20050501, end: 20050801
  2. CRESTOR [Concomitant]
  3. TOPROL-XL [Concomitant]

REACTIONS (2)
  - AFFECT LABILITY [None]
  - IMPULSE-CONTROL DISORDER [None]
